FAERS Safety Report 16190307 (Version 6)
Quarter: 2020Q1

REPORT INFORMATION
  Report Type: Spontaneous
  Country: US (occurrence: US)
  Receive Date: 20190412
  Receipt Date: 20200227
  Transmission Date: 20200409
  Serious: Yes (Other)
  Sender: FDA-Public Use
  Company Number: US-PFIZER INC-2019149512

PATIENT
  Age: 55 Year
  Sex: Female

DRUGS (1)
  1. XELJANZ [Suspect]
     Active Substance: TOFACITINIB CITRATE
     Indication: ARTHRITIS
     Dosage: 5 MG, UNK
     Dates: start: 2018

REACTIONS (7)
  - Upper limb fracture [Unknown]
  - Condition aggravated [Unknown]
  - Pain [Unknown]
  - Disease progression [Unknown]
  - Therapeutic response unexpected [Recovering/Resolving]
  - Pre-existing condition improved [Recovering/Resolving]
  - Hand deformity [Unknown]

NARRATIVE: CASE EVENT DATE: 2018
